FAERS Safety Report 8768811 (Version 2)
Quarter: 2012Q4

REPORT INFORMATION
  Report Type: 
  Country: US (occurrence: US)
  Receive Date: 20120906
  Receipt Date: 20121023
  Transmission Date: 20130627
  Serious: Yes (Other)
  Sender: FDA-Public Use
  Company Number: US-UCBSA-064771

PATIENT
  Age: 47 Year
  Sex: Male

DRUGS (1)
  1. CIMZIA [Suspect]
     Indication: RHEUMATOID ARTHRITIS
     Dosage: 2X200 MG/ML STARTER KIT WEEK 0,2, 4
     Dates: start: 2012, end: 2012

REACTIONS (2)
  - Chronic obstructive pulmonary disease [Recovered/Resolved]
  - Upper respiratory tract infection [Recovered/Resolved]
